FAERS Safety Report 4736933-6 (Version None)
Quarter: 2005Q3

REPORT INFORMATION
  Report Type: 
  Country: None (occurrence: None)
  Receive Date: 20050803
  Receipt Date: 20050726
  Transmission Date: 20060218
  Serious: Yes (Hospitalization)
  Sender: FDA-Public Use
  Company Number: 200510682BCC

PATIENT
  Age: 68 Year
  Sex: Female
  Weight: 68.0396 kg

DRUGS (2)
  1. ALEVE [Suspect]
     Indication: ARTHRALGIA
     Dosage: 440 MG, TOTAL DAILY, ORAL
     Route: 048
     Dates: start: 20010101
  2. SYNTHROID [Concomitant]

REACTIONS (1)
  - DUODENAL ULCER PERFORATION [None]
